FAERS Safety Report 17018938 (Version 1)
Quarter: 2019Q4

REPORT INFORMATION
  Report Type: Spontaneous
  Country: GB (occurrence: GB)
  Receive Date: 20191112
  Receipt Date: 20191112
  Transmission Date: 20200122
  Serious: Yes (Disabling)
  Sender: FDA-Public Use
  Company Number: GB-AUROBINDO-AUR-APL-2019-071523

PATIENT
  Age: 34 Year
  Sex: Male
  Weight: 74 kg

DRUGS (1)
  1. CIPROFLOXACIN. [Suspect]
     Active Substance: CIPROFLOXACIN
     Indication: ORCHITIS
     Dosage: UNK
     Route: 048
     Dates: start: 20180514

REACTIONS (7)
  - Tremor [Recovering/Resolving]
  - Anxiety [Recovering/Resolving]
  - Psychological trauma [Recovering/Resolving]
  - Psychotic disorder [Recovering/Resolving]
  - Sleep disorder [Recovering/Resolving]
  - Paranoia [Recovering/Resolving]
  - Dyskinesia [Recovering/Resolving]

NARRATIVE: CASE EVENT DATE: 20180514
